FAERS Safety Report 4371755-X (Version None)
Quarter: 2004Q2

REPORT INFORMATION
  Report Type: 
  Country: None (occurrence: None)
  Receive Date: 20040601
  Receipt Date: 20040226
  Transmission Date: 20050107
  Serious: No
  Sender: FDA-Public Use
  Company Number: 701369

PATIENT
  Age: 57 Year
  Sex: Male
  Weight: 108.8633 kg

DRUGS (11)
  1. AMEVIVE [Suspect]
     Indication: PSORIASIS
     Dosage: 7.5 G QW IV
     Route: 042
     Dates: start: 20031023, end: 20031101
  2. AMEVIVE [Suspect]
     Indication: PSORIATIC ARTHROPATHY
     Dosage: 7.5 G QW IV
     Route: 042
     Dates: start: 20031023, end: 20031101
  3. CARDURA [Concomitant]
  4. ZIAC [Concomitant]
  5. PRILOSEC [Concomitant]
  6. VIOXX [Concomitant]
  7. OLUM FOAM [Concomitant]
  8. TEMOVATE [Concomitant]
  9. ULTRAVATE [Concomitant]
  10. PSORCON [Concomitant]
  11. PROTOPIC [Concomitant]

REACTIONS (3)
  - CD4 LYMPHOCYTES [None]
  - CD4/CD8 RATIO INCREASED [None]
  - LEUKOPENIA [None]
